FAERS Safety Report 9166807 (Version 1)
Quarter: 2012Q4

REPORT INFORMATION
  Report Type: 
  Country: US (occurrence: US)
  Receive Date: 20121109
  Receipt Date: 20121109
  Transmission Date: 20130627
  Serious: Yes (Hospitalization)
  Sender: FDA-Public Use
  Company Number: US-RB-046442-12

PATIENT
  Age: 54 Year
  Sex: Female

DRUGS (6)
  1. BUPRENORPHINE [Suspect]
     Indication: DRUG DEPENDENCE
     Route: 060
     Dates: start: 20121010, end: 201210
  2. SUBOXONE TABLETS [Suspect]
     Indication: DRUG DEPENDENCE
     Route: 060
     Dates: start: 201210, end: 201210
  3. SUBOXONE FILM [Suspect]
     Indication: DRUG DEPENDENCE
     Dosage: Suboxone film
     Route: 060
     Dates: start: 201210
  4. SAVELLA [Concomitant]
     Indication: ARTHRITIS
     Dosage: Dosing details unknown
     Route: 065
     Dates: start: 201210
  5. TRAZADONE [Concomitant]
     Indication: DEPRESSION
     Dosage: Dosing details unknown
     Route: 065
     Dates: start: 201210
  6. ZANAFLEX [Concomitant]
     Indication: PAIN
     Dosage: Dosing details unknown
     Route: 065
     Dates: start: 201210

REACTIONS (3)
  - Deep vein thrombosis [Not Recovered/Not Resolved]
  - Post procedural haematoma [Not Recovered/Not Resolved]
  - Incision site pain [Not Recovered/Not Resolved]
